FAERS Safety Report 7166181-4 (Version None)
Quarter: 2010Q4

REPORT INFORMATION
  Report Type: 
  Country: None (occurrence: None)
  Receive Date: 20101202
  Receipt Date: 20101124
  Transmission Date: 20110411
  Serious: Yes (Hospitalization)
  Sender: FDA-Public Use
  Company Number: TPA2010A05973

PATIENT
  Age: 63 Year
  Sex: Male

DRUGS (11)
  1. ADENURIC (FEBUXOSTAT) [Suspect]
     Indication: GOUT
     Dosage: 120 MG (120 MG,1 IN 1 D) PER ORAL
     Route: 048
     Dates: start: 20100801, end: 20101001
  2. TEMERIT (NEBIVOLOL) [Suspect]
     Dosage: 5 MG (5 MG,1 IN 1 D) PER ORAL
     Route: 048
     Dates: start: 20100101, end: 20101012
  3. VIDAZA [Suspect]
     Indication: ACUTE MYELOID LEUKAEMIA
     Dosage: INTRAVENOUS (NOT OTHERWISE SPECIFIED)
     Route: 042
     Dates: start: 20081119, end: 20100921
  4. COLCHIMAX (COLCHICINE, TIEMONIUM METHYLSULPHATE, PAPAVER SOMNIFERUM PO [Suspect]
     Indication: GOUT
     Dosage: PER ORAL
     Route: 048
     Dates: start: 20100715, end: 20101001
  5. COKENEZEN (HYDROCHLOROTHIAZIDE, CANDESARTAN CILEXETIL) [Concomitant]
  6. FENOFIBRIATE (FENOFIBRATE) [Concomitant]
  7. OMEPRAZOLE [Concomitant]
  8. METFORMIN HCL [Concomitant]
  9. FOLIC ACID [Concomitant]
  10. SPORANOX [Concomitant]
  11. DISULONE (DAPSONE, FERROUS OXALATE) [Concomitant]

REACTIONS (7)
  - ACUTE PRERENAL FAILURE [None]
  - BRONCHOALVEOLAR LAVAGE ABNORMAL [None]
  - DIARRHOEA [None]
  - GOUT [None]
  - NAUSEA [None]
  - ORGANISING PNEUMONIA [None]
  - STENOTROPHOMONAS TEST POSITIVE [None]
